FAERS Safety Report 9718914 (Version 2)
Quarter: 2014Q1

REPORT INFORMATION
  Report Type: Report from Study
  Country: BR (occurrence: BR)
  Receive Date: 20131127
  Receipt Date: 20140203
  Transmission Date: 20141002
  Serious: Yes (Hospitalization)
  Sender: FDA-Public Use
  Company Number: BR-US-EMD SERONO, INC.-7251796

PATIENT
  Age: 43 Year
  Sex: Male

DRUGS (3)
  1. REBIF [Suspect]
     Indication: MULTIPLE SCLEROSIS
     Dates: start: 20081011, end: 20130901
  2. REBIF [Suspect]
     Route: 058
  3. LOSARTAN POTASSIUM W/HYDROCHLOROTHIAZIDE [Concomitant]
     Indication: BLOOD PRESSURE INCREASED

REACTIONS (5)
  - Infarction [Recovered/Resolved]
  - Pneumonia [Recovered/Resolved]
  - Tachycardia [Recovering/Resolving]
  - Renal failure acute [Recovered/Resolved]
  - Muscular weakness [Recovering/Resolving]
